FAERS Safety Report 9798385 (Version 1)
Quarter: 2013Q4

REPORT INFORMATION
  Report Type: Spontaneous
  Country: FR (occurrence: None)
  Receive Date: 20131230
  Receipt Date: 20131230
  Transmission Date: 20140711
  Serious: Yes (Hospitalization)
  Sender: FDA-Public Use
  Company Number: 2013000345

PATIENT
  Age: 46 Year
  Sex: Female

DRUGS (2)
  1. ACEON (PERINDOPRIL ERBUMINE) TABLET [Suspect]
     Indication: PRODUCT USED FOR UNKNOWN INDICATION
     Route: 048
     Dates: start: 201307, end: 201307
  2. LEELOO [Suspect]
     Indication: CONTRACEPTION
     Route: 048

REACTIONS (2)
  - Urticaria [None]
  - Angioedema [None]
